FAERS Safety Report 17168034 (Version 1)
Quarter: 2019Q4

REPORT INFORMATION
  Report Type: Report from Study
  Country: None (occurrence: CA)
  Receive Date: 20191218
  Receipt Date: 20191218
  Transmission Date: 20200122
  Serious: Yes (Other)
  Sender: FDA-Public Use
  Company Number: CA-ABBVIE-19K-028-3193187-00

PATIENT
  Sex: Male

DRUGS (1)
  1. HUMIRA [Suspect]
     Active Substance: ADALIMUMAB
     Indication: COLITIS ULCERATIVE
     Route: 058
     Dates: start: 20161221

REACTIONS (5)
  - Hepatic steatosis [Not Recovered/Not Resolved]
  - Body mass index increased [Not Recovered/Not Resolved]
  - Colitis [Unknown]
  - Cholangitis sclerosing [Unknown]
  - Gastrointestinal dysplasia [Unknown]
